FAERS Safety Report 5557401-8 (Version None)
Quarter: 2007Q4

REPORT INFORMATION
  Report Type: 
  Country: None (occurrence: None)
  Receive Date: 20071211
  Receipt Date: 20071129
  Transmission Date: 20080405
  Serious: Yes (Other)
  Sender: FDA-Public Use
  Company Number: GXKR2007GB10251

PATIENT
  Sex: Male
  Weight: 86 kg

DRUGS (1)
  1. SIMVASTATIN [Suspect]
     Dosage: 40 MG, ORAL
     Route: 048

REACTIONS (2)
  - PALATAL DISORDER [None]
  - SKIN LESION [None]
